FAERS Safety Report 25163000 (Version 1)
Quarter: 2025Q2

REPORT INFORMATION
  Report Type: Spontaneous
  Country: US (occurrence: US)
  Receive Date: 20250404
  Receipt Date: 20250404
  Transmission Date: 20250716
  Serious: Yes (Hospitalization)
  Sender: BAYER
  Company Number: US-BAYER-2025A043283

PATIENT
  Age: 51 Year
  Sex: Male

DRUGS (1)
  1. REGORAFENIB [Suspect]
     Active Substance: REGORAFENIB
     Indication: Sarcoma metastatic

REACTIONS (4)
  - Ventricular tachycardia [None]
  - Myocarditis [None]
  - Product use in unapproved indication [None]
  - Product prescribing issue [None]
